FAERS Safety Report 25900946 (Version 2)
Quarter: 2025Q4

REPORT INFORMATION
  Report Type: Spontaneous
  Country: US (occurrence: US)
  Receive Date: 20251009
  Receipt Date: 20251016
  Transmission Date: 20260118
  Serious: Yes (Death, Hospitalization, Other)
  Sender: ZYDUS PHARM
  Company Number: US-CADILA HEALTHCARE LIMITED-US-ZYDUS-129303

PATIENT

DRUGS (26)
  1. CHLORPROMAZINE [Suspect]
     Active Substance: CHLORPROMAZINE
     Indication: Schizophrenia
     Dosage: 25 MILLIGRAM
     Route: 048
     Dates: start: 2025, end: 2025
  2. CHLORPROMAZINE [Suspect]
     Active Substance: CHLORPROMAZINE
     Dosage: 50 MILLIGRAM, 3 TABS THREE TIMES DAILY
     Route: 048
     Dates: start: 2025, end: 202507
  3. CHLORPROMAZINE [Suspect]
     Active Substance: CHLORPROMAZINE
     Dosage: 100 MILLIGRAM
     Route: 048
     Dates: start: 2025, end: 2025
  4. LITHIUM [Suspect]
     Active Substance: LITHIUM
     Indication: Schizophrenia
     Dosage: 300 MILLIGRAM, BID
     Route: 048
     Dates: end: 202507
  5. BISACODYL [Concomitant]
     Active Substance: BISACODYL
     Indication: Constipation
     Dosage: 5 MILLIGRAM Q 24 HOURS AS NEEDED
     Route: 048
     Dates: end: 2025
  6. CHOLECALCIFEROL [Concomitant]
     Active Substance: CHOLECALCIFEROL
     Indication: Product used for unknown indication
     Dosage: 2000 UNIT, QD
     Route: 048
     Dates: start: 20250726, end: 2025
  7. CHOLECALCIFEROL [Concomitant]
     Active Substance: CHOLECALCIFEROL
     Dosage: 100 MICROGRAM, QD
     Route: 048
     Dates: start: 202507
  8. CLONAZEPAM [Concomitant]
     Active Substance: CLONAZEPAM
     Indication: Product used for unknown indication
     Dosage: 0.5 MILLIGRAM, BID
     Route: 048
     Dates: end: 2025
  9. CLONAZEPAM [Concomitant]
     Active Substance: CLONAZEPAM
     Dosage: 1 MILLIGRAM, BID
     Route: 048
     Dates: end: 2025
  10. HALOPERIDOL [Concomitant]
     Active Substance: HALOPERIDOL
     Indication: Agitation
     Dosage: 2.5 MILLIGRAM UNDER TONGUE Q 2 HOURS AS NEEDED
     Route: 060
     Dates: start: 20250723, end: 2025
  11. HALOPERIDOL [Concomitant]
     Active Substance: HALOPERIDOL
     Dosage: 2 MILLIGRAM Q 3 HOURS AS NEEDED
     Route: 030
     Dates: end: 2025
  12. HALOPERIDOL [Concomitant]
     Active Substance: HALOPERIDOL
     Dosage: 5 MILLIGRAM Q 4 HOURS AS NEEDED
     Route: 030
     Dates: start: 20250731, end: 2025
  13. HALOPERIDOL [Concomitant]
     Active Substance: HALOPERIDOL
     Dosage: 2.5 MILLIGRAM UNDER TONGUE Q 2 HOURS AS NEEDED
     Route: 060
     Dates: start: 20250731, end: 2025
  14. INSULIN HUMAN [Concomitant]
     Active Substance: INSULIN HUMAN
     Indication: Blood glucose
     Dosage: 1-6 UNITS BENEATH SKIN TWICE DAILY WITH MEALS
     Route: 058
     Dates: end: 2025
  15. LEVOTHYROXINE [Concomitant]
     Active Substance: LEVOTHYROXINE
     Indication: Product used for unknown indication
     Dosage: 50 MICROGRAM, QD
     Route: 048
     Dates: end: 2025
  16. LOPERAMIDE [Concomitant]
     Active Substance: LOPERAMIDE
     Indication: Product used for unknown indication
     Dosage: 2 MILLIGRAM Q 6 HOURS
     Route: 048
  17. BENZTROPINE MESYLATE [Concomitant]
     Active Substance: BENZTROPINE MESYLATE
     Indication: Product used for unknown indication
     Dosage: UNK
     Route: 065
     Dates: end: 202507
  18. LORAZEPAM [Concomitant]
     Active Substance: LORAZEPAM
     Indication: Anxiety
     Dosage: 0.5 MILLILITER Q 2 HOURS AS NEEDED
     Route: 048
  19. QUETIAPINE [Concomitant]
     Active Substance: QUETIAPINE
     Indication: Product used for unknown indication
     Dosage: 400 MILLIGRAM, QD AT BEDTIME
     Route: 048
     Dates: end: 202507
  20. MIDODRINE [Concomitant]
     Active Substance: MIDODRINE
     Indication: Product used for unknown indication
     Dosage: 10 MILLIGRAM 3 TIMES DAILY WITH MEALS
     Route: 048
  21. MORPHINE [Concomitant]
     Active Substance: MORPHINE
     Indication: Product used for unknown indication
     Dosage: 0.5 MILLILITER Q 2 HOURS AS NEEDED
     Route: 048
     Dates: end: 2025
  22. MINERALS\VITAMINS [Concomitant]
     Active Substance: MINERALS\VITAMINS
     Indication: Product used for unknown indication
     Dosage: 15 MILLILITER, QD
     Route: 048
  23. OLANZAPINE [Concomitant]
     Active Substance: OLANZAPINE
     Indication: Pain
     Dosage: 5 MILLIGRAM Q NIGHT
     Route: 048
  24. OMEPRAZOLE [Concomitant]
     Active Substance: OMEPRAZOLE
     Indication: Product used for unknown indication
     Dosage: 20 MILLIGRAM QD BEFORE BREAKFAST
     Route: 048
     Dates: end: 2025
  25. OXYCODONE [Concomitant]
     Active Substance: OXYCODONE
     Indication: Pain
     Dosage: 0.25 MILLILITER Q 2 HOURS AS NEEDED
     Route: 048
  26. PANTOPRAZOLE [Concomitant]
     Active Substance: PANTOPRAZOLE
     Indication: Gastrooesophageal reflux disease
     Dosage: 40 MILLIGRAM, QD
     Route: 048

REACTIONS (17)
  - Adult failure to thrive [Unknown]
  - Death [Fatal]
  - Toxicity to various agents [Recovered/Resolved]
  - Consciousness fluctuating [Recovered/Resolved]
  - Upper gastrointestinal haemorrhage [Unknown]
  - Shock haemorrhagic [Unknown]
  - Hypothermia [Recovered/Resolved]
  - Hypocalcaemia [Unknown]
  - Hypokalaemia [Unknown]
  - Toxic encephalopathy [Unknown]
  - Dysphagia [Unknown]
  - Hypothyroidism [Unknown]
  - Haemoglobin decreased [Recovered/Resolved]
  - Malnutrition [Unknown]
  - Mobility decreased [Unknown]
  - Electrocardiogram QT prolonged [Recovered/Resolved]
  - Pyrexia [Recovered/Resolved]

NARRATIVE: CASE EVENT DATE: 20250605
